FAERS Safety Report 7398744-5 (Version None)
Quarter: 2011Q2

REPORT INFORMATION
  Report Type: 
  Country: None (occurrence: None)
  Receive Date: 20110401
  Receipt Date: 20110401
  Transmission Date: 20111010
  Serious: Yes (Hospitalization)
  Sender: FDA-Public Use
  Company Number: None

PATIENT
  Sex: Male
  Weight: 78.4723 kg

DRUGS (11)
  1. STALEVO 100 [Concomitant]
  2. MIDODRINE HYDROCHLORIDE [Concomitant]
  3. NAMENDA [Concomitant]
  4. DONEPEZIL [Concomitant]
  5. CALCIUM CARBONATE [Concomitant]
  6. GENTAMICIN [Suspect]
     Indication: MULTIPLE-DRUG RESISTANCE
     Dosage: 500 MG DAILY IV DRIP
     Route: 041
     Dates: start: 20110122, end: 20110207
  7. GENTAMICIN [Suspect]
     Indication: URINARY TRACT INFECTION
     Dosage: 500 MG DAILY IV DRIP
     Route: 041
     Dates: start: 20110122, end: 20110207
  8. FERROUS SULFATE TAB [Concomitant]
  9. MULTI-VITAMIN [Concomitant]
  10. FLORINEF ACETATE [Concomitant]
  11. MIRAPEX [Concomitant]

REACTIONS (7)
  - AGITATION [None]
  - HALLUCINATION [None]
  - RENAL FAILURE ACUTE [None]
  - CONFUSIONAL STATE [None]
  - THROMBOCYTOPENIA [None]
  - DEHYDRATION [None]
  - ANAEMIA [None]
